FAERS Safety Report 6541686-5 (Version None)
Quarter: 2010Q1

REPORT INFORMATION
  Report Type: 
  Country: None (occurrence: None)
  Receive Date: 20100119
  Receipt Date: 20100109
  Transmission Date: 20100710
  Serious: Yes (Other)
  Sender: FDA-Public Use
  Company Number: US-AMGEN-QUU385102

PATIENT
  Sex: Female

DRUGS (2)
  1. ENBREL [Suspect]
     Indication: PSORIATIC ARTHROPATHY
     Route: 058
     Dates: start: 20010901
  2. METHOTREXATE [Concomitant]

REACTIONS (5)
  - ARTHROPOD BITE [None]
  - LYME DISEASE [None]
  - RASH MACULAR [None]
  - SWELLING [None]
  - UNEVALUABLE EVENT [None]
